FAERS Safety Report 6173935-X (Version None)
Quarter: 2009Q2

REPORT INFORMATION
  Report Type: 
  Country: None (occurrence: None)
  Receive Date: 20090429
  Receipt Date: 20090429
  Transmission Date: 20091009
  Serious: Yes (Death)
  Sender: FDA-Public Use
  Company Number: None

PATIENT
  Age: 30 Year
  Sex: Male
  Weight: 77.1115 kg

DRUGS (4)
  1. BLEOMYCIN SULFATE [Suspect]
     Indication: TESTIS CANCER
     Dosage: 210 UNITS CUMULATIVE DOSE IV
     Route: 042
     Dates: start: 20080211, end: 20080513
  2. CISPLATIN [Concomitant]
  3. ETOPOSIDE [Concomitant]
  4. PEGFILGRASTIM [Concomitant]

REACTIONS (4)
  - ACUTE RESPIRATORY DISTRESS SYNDROME [None]
  - NO THERAPEUTIC RESPONSE [None]
  - PULMONARY TOXICITY [None]
  - RESPIRATORY ACIDOSIS [None]
